FAERS Safety Report 7553877-5 (Version None)
Quarter: 2011Q2

REPORT INFORMATION
  Report Type: 
  Country: None (occurrence: None)
  Receive Date: 20110617
  Receipt Date: 20110608
  Transmission Date: 20111010
  Serious: Yes (Disabling)
  Sender: FDA-Public Use
  Company Number: JP-JNJFOC-20091203028

PATIENT
  Sex: Female
  Weight: 52 kg

DRUGS (25)
  1. LENDORMIN D [Concomitant]
     Route: 048
     Dates: end: 20091011
  2. AZUNOL [Concomitant]
     Indication: PROPHYLAXIS
     Route: 002
     Dates: start: 20090813, end: 20090825
  3. DOXORUBICIN HCL [Suspect]
     Dosage: CYCLE 3
     Route: 042
     Dates: start: 20091216, end: 20091216
  4. DEXALTIN [Concomitant]
     Indication: STOMATITIS
     Route: 049
     Dates: start: 20090813, end: 20090825
  5. XYLOCAINE [Concomitant]
     Indication: STOMATITIS
     Route: 002
     Dates: start: 20090813, end: 20090825
  6. LOXONIN [Concomitant]
     Route: 048
     Dates: end: 20090919
  7. METHYCOBAL [Concomitant]
     Indication: NEUROPATHY PERIPHERAL
     Route: 048
  8. DOXORUBICIN HCL [Suspect]
     Dosage: CYCLE 2
     Route: 042
     Dates: start: 20090729, end: 20090729
  9. DOXORUBICIN HCL [Suspect]
     Dosage: CYCLE 5
     Route: 042
     Dates: start: 20100210, end: 20100210
  10. WARFARIN SODIUM [Concomitant]
     Indication: PROPHYLAXIS
     Route: 048
     Dates: end: 20090803
  11. ADONA [Concomitant]
     Route: 048
     Dates: start: 20090803, end: 20090813
  12. WARFARIN SODIUM [Concomitant]
     Route: 048
     Dates: start: 20090813, end: 20091003
  13. LENDORMIN D [Concomitant]
     Indication: INSOMNIA
     Route: 048
     Dates: start: 20091215
  14. DOXORUBICIN HCL [Suspect]
     Dosage: CYCLE 4
     Route: 042
     Dates: start: 20100113, end: 20100113
  15. WARFARIN SODIUM [Concomitant]
     Route: 048
     Dates: start: 20091004
  16. LAXOBERON [Concomitant]
     Indication: CONSTIPATION
     Route: 048
  17. FOROCYLE S [Concomitant]
     Route: 042
     Dates: start: 20090710, end: 20090710
  18. FILGRASTIM [Concomitant]
     Indication: NEUTROPHIL COUNT DECREASED
     Route: 058
     Dates: start: 20090718, end: 20090719
  19. FILGRASTIM [Concomitant]
     Route: 058
     Dates: start: 20090819, end: 20090821
  20. PASTARON [Concomitant]
     Indication: PROPHYLAXIS
     Route: 061
     Dates: start: 20090701
  21. POLAPREZINC [Concomitant]
     Indication: PROPHYLAXIS
     Route: 048
  22. DOXORUBICIN HCL [Suspect]
     Indication: OVARIAN CANCER RECURRENT
     Dosage: CYCLE 6
     Route: 042
     Dates: start: 20100310, end: 20100310
  23. DOXORUBICIN HCL [Suspect]
     Dosage: CYCLE 1
     Route: 042
     Dates: start: 20090701, end: 20090701
  24. PRIMPERAN TAB [Concomitant]
     Indication: PROPHYLAXIS
     Route: 048
     Dates: start: 20090701
  25. MAGNESIUM OXIDE [Concomitant]
     Indication: CONSTIPATION
     Route: 048

REACTIONS (1)
  - FEMALE GENITAL TRACT FISTULA [None]
